FAERS Safety Report 12437600 (Version 1)
Quarter: 2016Q2

REPORT INFORMATION
  Report Type: Spontaneous
  Country: US (occurrence: US)
  Receive Date: 20160606
  Receipt Date: 20160606
  Transmission Date: 20160815
  Serious: No
  Sender: FDA-Public Use
  Company Number: US-ASTRAZENECA-2016SE46396

PATIENT
  Sex: Female
  Weight: 144.2 kg

DRUGS (5)
  1. TRULICITY [Concomitant]
     Active Substance: DULAGLUTIDE
  2. LANTUS [Concomitant]
     Active Substance: INSULIN GLARGINE
  3. BYDUREON [Suspect]
     Active Substance: EXENATIDE
     Route: 065
  4. JANUMET [Concomitant]
     Active Substance: METFORMIN HYDROCHLORIDE\SITAGLIPTIN PHOSPHATE
  5. GLIPIZIDE. [Concomitant]
     Active Substance: GLIPIZIDE

REACTIONS (2)
  - Feeling abnormal [Unknown]
  - Dyspnoea [Unknown]
